FAERS Safety Report 8264995-0 (Version None)
Quarter: 2012Q2

REPORT INFORMATION
  Report Type: 
  Country: None (occurrence: None)
  Receive Date: 20120403
  Receipt Date: 20120326
  Transmission Date: 20120825
  Serious: Yes (Hospitalization)
  Sender: FDA-Public Use
  Company Number: DSA_55866_2012

PATIENT
  Age: 50 Year
  Sex: Male

DRUGS (5)
  1. LOVENOX [Suspect]
     Indication: PRODUCT USED FOR UNKNOWN INDICATION
     Dosage: (2000 IU, FREQUENCY UNKNOWN SUBCUTANEOUS)
     Route: 058
     Dates: start: 20111010, end: 20111011
  2. CEFTRIAXONE (ROCEPHIN) [Suspect]
     Indication: PRODUCT USED FOR UNKNOWN INDICATION
     Dosage: (2 G QD INTRAVENOUS (NOT OTHERWISE SPECIFIED)
     Route: 042
     Dates: start: 20111010, end: 20111011
  3. OFLOXACIN [Suspect]
     Indication: PRODUCT USED FOR UNKNOWN INDICATION
     Dosage: (200 MG BID ORAL)
     Route: 048
     Dates: start: 20111010, end: 20111010
  4. TAVANIC (TAVANIC-LEVOFLOXACIN) (NOT SPECIFIED) [Suspect]
     Indication: PRODUCT USED FOR UNKNOWN INDICATION
     Dosage: (5 MG/ML, FREQUENCY UNKNOWN INTRAVENOUS (NOT OTHERWISE SPECIFIED)
     Route: 042
     Dates: start: 20111011, end: 20111012
  5. FLAGYL [Suspect]
     Indication: PRODUCT USED FOR UNKNOWN INDICATION
     Dosage: (500 MG TID ORAL)
     Route: 048
     Dates: start: 20111010, end: 20111010

REACTIONS (1)
  - THROMBOCYTOPENIA [None]
